FAERS Safety Report 8933961 (Version 1)
Quarter: 2012Q4

REPORT INFORMATION
  Report Type: 
  Country: CA (occurrence: CA)
  Receive Date: 20121129
  Receipt Date: 20121129
  Transmission Date: 20130627
  Serious: Yes (Death, Hospitalization)
  Sender: FDA-Public Use
  Company Number: CA-B.I. PHARMACEUTICALS,INC./RIDGEFIELD-2012-CN-02351CN

PATIENT
  Age: 76 Year
  Sex: Female

DRUGS (2)
  1. PRADAX [Suspect]
     Indication: ATRIAL FIBRILLATION
     Dosage: 220 mg
     Dates: start: 20111027, end: 20121003
  2. WARFARIN [Concomitant]
     Dates: start: 201210

REACTIONS (2)
  - Cerebrovascular accident [Fatal]
  - Pruritus [Recovered/Resolved]
